FAERS Safety Report 4608521-3 (Version None)
Quarter: 2005Q1

REPORT INFORMATION
  Report Type: 
  Country: None (occurrence: None)
  Receive Date: 20050315
  Receipt Date: 20050304
  Transmission Date: 20050727
  Serious: Yes (Other)
  Sender: FDA-Public Use
  Company Number: CA-GLAXOSMITHKLINE-A0548662A

PATIENT
  Age: 25 Year
  Sex: Female

DRUGS (1)
  1. ZYBAN [Suspect]
     Route: 048
     Dates: start: 20050220

REACTIONS (4)
  - BREAST DISCHARGE [None]
  - FATIGUE [None]
  - OLIGOMENORRHOEA [None]
  - VOMITING IN PREGNANCY [None]
